FAERS Safety Report 15198454 (Version 1)
Quarter: 2018Q3

REPORT INFORMATION
  Report Type: Spontaneous
  Country: US (occurrence: US)
  Receive Date: 20180627
  Receipt Date: 20180627
  Transmission Date: 20181010
  Serious: Yes (Hospitalization)
  Sender: FDA-Public Use
  Company Number: None

PATIENT
  Sex: Male

DRUGS (5)
  1. TYLENOL [Concomitant]
     Active Substance: ACETAMINOPHEN
  2. VOTRIENT [Suspect]
     Active Substance: PAZOPANIB HYDROCHLORIDE
     Indication: SOFT TISSUE SARCOMA
     Route: 048
     Dates: start: 20180601
  3. ENOXAPARIN [Concomitant]
     Active Substance: ENOXAPARIN
  4. GABAPENTIN. [Concomitant]
     Active Substance: GABAPENTIN
  5. HYDROCOD/HOM [Concomitant]

REACTIONS (3)
  - Dysphonia [None]
  - Thrombosis [None]
  - Neoplasm [None]
